FAERS Safety Report 14536677 (Version 1)
Quarter: 2018Q1

REPORT INFORMATION
  Report Type: Spontaneous
  Country: US (occurrence: US)
  Receive Date: 20180215
  Receipt Date: 20180215
  Transmission Date: 20180509
  Serious: Yes (Hospitalization)
  Sender: FDA-Public Use
  Company Number: None

PATIENT
  Age: 77 Year
  Sex: Female
  Weight: 81.1 kg

DRUGS (10)
  1. XALATAN [Concomitant]
     Active Substance: LATANOPROST
  2. PRILOSEC [Concomitant]
     Active Substance: OMEPRAZOLE MAGNESIUM
  3. XARELTO [Suspect]
     Active Substance: RIVAROXABAN
     Indication: DEEP VEIN THROMBOSIS
     Route: 048
  4. AZOPT [Concomitant]
     Active Substance: BRINZOLAMIDE
  5. APRESOLINE HYDROCHLORIDE [Concomitant]
     Active Substance: HYDRALAZINE HYDROCHLORIDE
  6. PRAVACHO [Concomitant]
  7. CARDIZEM CD [Concomitant]
     Active Substance: DILTIAZEM HYDROCHLORIDE
  8. MAGOX [Concomitant]
  9. APAP [Concomitant]
     Active Substance: ACETAMINOPHEN
  10. DUONEB [Concomitant]
     Active Substance: ALBUTEROL SULFATE\IPRATROPIUM BROMIDE

REACTIONS (8)
  - Therapy non-responder [None]
  - Cardiac arrest [None]
  - Therapy cessation [None]
  - Activated partial thromboplastin time prolonged [None]
  - International normalised ratio increased [None]
  - Anaemia [None]
  - Pericardial effusion [None]
  - Coagulopathy [None]

NARRATIVE: CASE EVENT DATE: 20170517
